FAERS Safety Report 23244829 (Version 2)
Quarter: 2023Q4

REPORT INFORMATION
  Report Type: Spontaneous
  Country: US (occurrence: US)
  Receive Date: 20231130
  Receipt Date: 20231227
  Transmission Date: 20240110
  Serious: Yes (Hospitalization)
  Sender: FDA-Public Use
  Company Number: US-REATA PHARMACEUTICALS INC.-2023USRTAOMA000206

PATIENT

DRUGS (1)
  1. SKYCLARYS [Suspect]
     Active Substance: OMAVELOXOLONE
     Indication: Friedreich^s ataxia
     Dosage: 150 MILLIGRAM, BY MOUTH DAILY
     Route: 048
     Dates: start: 20230721

REACTIONS (4)
  - Arrhythmia [None]
  - Cardiac disorder [Unknown]
  - Abdominal pain upper [None]
  - Product dose omission issue [Unknown]

NARRATIVE: CASE EVENT DATE: 20230101
